FAERS Safety Report 18985498 (Version 1)
Quarter: 2021Q1

REPORT INFORMATION
  Report Type: Report from Study
  Country: US (occurrence: US)
  Receive Date: 20210309
  Receipt Date: 20210309
  Transmission Date: 20210420
  Serious: Yes (Other)
  Sender: FDA-Public Use
  Company Number: NVSC2021US045389

PATIENT
  Sex: Female

DRUGS (1)
  1. PIQRAY [Suspect]
     Active Substance: ALPELISIB
     Indication: PRODUCT USED FOR UNKNOWN INDICATION
     Dosage: UNK
     Route: 048
     Dates: start: 20210203

REACTIONS (6)
  - Nausea [Unknown]
  - Glycosylated haemoglobin abnormal [Unknown]
  - Asthenia [Unknown]
  - Ill-defined disorder [Unknown]
  - Pruritus [Unknown]
  - Blood glucose increased [Unknown]
